FAERS Safety Report 15346873 (Version 2)
Quarter: 2018Q3

REPORT INFORMATION
  Report Type: Report from Study
  Country: EC (occurrence: EC)
  Receive Date: 20180904
  Receipt Date: 20180906
  Transmission Date: 20181010
  Serious: Yes (Death, Hospitalization, Other)
  Sender: FDA-Public Use
  Company Number: PHHY2018EC082814

PATIENT
  Age: 84 Year
  Sex: Female

DRUGS (4)
  1. CARVEDIL [Concomitant]
     Active Substance: CARVEDILOL
     Indication: HYPERTENSION
     Dosage: UNK
     Route: 048
     Dates: start: 20180707
  2. CAPTOPRIL. [Concomitant]
     Active Substance: CAPTOPRIL
     Indication: HYPERTENSION
     Dosage: (STARTED 2 YEARS AGO)
     Route: 060
     Dates: end: 20180706
  3. ENTRESTO [Suspect]
     Active Substance: SACUBITRIL\VALSARTAN
     Indication: CARDIAC FAILURE
     Dosage: 100 MG (49 MG SACUBITRIL, 51 MG VALSARTAN), BID
     Route: 048
     Dates: start: 20180707
  4. FUROSEMIDE. [Suspect]
     Active Substance: FUROSEMIDE
     Indication: PRODUCT USED FOR UNKNOWN INDICATION
     Dosage: UNK
     Route: 065

REACTIONS (10)
  - Choking [Unknown]
  - Myocardial infarction [Fatal]
  - Mobility decreased [Unknown]
  - Pollakiuria [Unknown]
  - Pulmonary hypertension [Unknown]
  - Fluid retention [Unknown]
  - Cardiac failure [Unknown]
  - Generalised oedema [Unknown]
  - Skin discolouration [Unknown]
  - Chest discomfort [Unknown]

NARRATIVE: CASE EVENT DATE: 20180813
